FAERS Safety Report 4621232-3 (Version None)
Quarter: 2005Q1

REPORT INFORMATION
  Report Type: 
  Country: None (occurrence: None)
  Receive Date: 20050322
  Receipt Date: 20050322
  Transmission Date: 20050727
  Serious: Yes (Hospitalization)
  Sender: FDA-Public Use
  Company Number: None

PATIENT
  Age: 76 Year
  Sex: Male
  Weight: 85 kg

DRUGS (9)
  1. WARFARIN SODIUM [Suspect]
     Indication: DEEP VEIN THROMBOSIS
     Dosage: 2.5 MG W/SA AND REST OF WEEK 5 MG
     Dates: start: 19920101, end: 20050203
  2. WARFARIN SODIUM [Suspect]
     Indication: PULMONARY EMBOLISM
     Dosage: 2.5 MG W/SA AND REST OF WEEK 5 MG
     Dates: start: 19920101, end: 20050203
  3. ATENOLOL [Concomitant]
  4. CELECOXIB [Concomitant]
  5. GLYBURIDE [Concomitant]
  6. LISINPRIL [Concomitant]
  7. SERTRALINE HCL [Concomitant]
  8. SIMVASTATIN [Concomitant]
  9. TERASOSIN [Concomitant]

REACTIONS (2)
  - GASTRIC ULCER HAEMORRHAGE [None]
  - INTERNATIONAL NORMALISED RATIO INCREASED [None]
